FAERS Safety Report 9734027 (Version 2)
Quarter: 2013Q4

REPORT INFORMATION
  Report Type: Report from Study
  Country: US (occurrence: US)
  Receive Date: 20131205
  Receipt Date: 20131205
  Transmission Date: 20140711
  Serious: Yes (Other)
  Sender: FDA-Public Use
  Company Number: US-BAYER-2013-120593

PATIENT
  Age: 70 Year
  Sex: Male
  Weight: 95.24 kg

DRUGS (17)
  1. STIVARGA [Suspect]
     Indication: COLON CANCER
     Dosage: 40 MG, QD
     Route: 048
     Dates: start: 201308, end: 201309
  2. STIVARGA [Suspect]
     Indication: COLON CANCER
     Dosage: UNK
  3. VITAMIN B6 [Concomitant]
     Dosage: 1 DF, TID
     Route: 048
  4. ASPIRIN [Concomitant]
     Dosage: 1 DF, QD
     Route: 048
  5. VERAPAMIL [Concomitant]
     Dosage: 1 DF, QD
  6. FUROSEMIDE [Concomitant]
     Dosage: 1 DF, QD
  7. ALBUTEROL [Concomitant]
     Dosage: 8 MG DAILY
     Route: 048
  8. LISINOPRIL [Concomitant]
     Dosage: 1 DF, QD
     Route: 048
  9. LOVASTATIN [Concomitant]
     Dosage: 1 DF, QD
     Route: 048
  10. MINOCYCLINE [Concomitant]
     Dosage: 200 MG DAILY
     Route: 048
  11. ACIDOPHILUS [Concomitant]
     Dosage: 2 DF DAILY
     Route: 048
  12. MAGNESIUM [Concomitant]
     Dosage: 1 DF, BID
     Route: 048
  13. OMEPRAZOLE [Concomitant]
     Dosage: 1 DF, QD
  14. COLESTID [Concomitant]
     Dosage: 60 MG, BID
     Route: 048
  15. LEUCOVORIN [Concomitant]
     Dosage: 880 MG
     Route: 042
  16. 5-FU [Concomitant]
     Dosage: 80 MG
     Route: 042
  17. IRINOTECAN [Concomitant]
     Dosage: 198 MG
     Route: 042

REACTIONS (6)
  - Electrocardiogram QT prolonged [None]
  - Asthenia [None]
  - Dizziness [None]
  - Hyperhidrosis [None]
  - Constipation [None]
  - Diarrhoea [None]
